FAERS Safety Report 5928950-5 (Version None)
Quarter: 2008Q4

REPORT INFORMATION
  Report Type: 
  Country: None (occurrence: None)
  Receive Date: 20081020
  Receipt Date: 20081010
  Transmission Date: 20090506
  Serious: Yes (Other)
  Sender: FDA-Public Use
  Company Number: TCI2008A05196

PATIENT
  Age: 31 Year
  Sex: Female

DRUGS (2)
  1. ACTOS [Suspect]
     Indication: POLYCYSTIC OVARIES
     Dosage: 30 MG (30 MG, 1 D) PER ORAL
     Route: 048
  2. CLOMIFENE CITRATE [Concomitant]

REACTIONS (2)
  - ABORTION SPONTANEOUS [None]
  - DRUG EXPOSURE DURING PREGNANCY [None]
